FAERS Safety Report 8608834 (Version 6)
Quarter: 2014Q1

REPORT INFORMATION
  Report Type: Report from Study
  Country: JP (occurrence: JP)
  Receive Date: 20120611
  Receipt Date: 20140327
  Transmission Date: 20141002
  Serious: Yes (Other)
  Sender: FDA-Public Use
  Company Number: JP-VERTEX PHARMACEUTICALS INC.-AE-2012-008499

PATIENT
  Age: 53 Year
  Sex: Male

DRUGS (12)
  1. VX-950 (TELAPREVIR) [Suspect]
     Indication: CHRONIC HEPATITIS C
     Dosage: 2250 MG, QD
     Route: 048
     Dates: start: 20120409, end: 20120422
  2. VX-950 (TELAPREVIR) [Suspect]
     Dosage: 1500 MG, QD
     Route: 048
     Dates: start: 20120423, end: 20120508
  3. VX-950 (TELAPREVIR) [Suspect]
     Dosage: 1500 MG, QD
     Route: 048
     Dates: start: 20120508, end: 20120702
  4. REBETOL [Suspect]
     Indication: CHRONIC HEPATITIS C
     Dosage: 1000 MG, QD
     Route: 048
     Dates: start: 20120409, end: 20120430
  5. REBETOL [Suspect]
     Dosage: 800 MG, QD
     Route: 048
     Dates: start: 20120501, end: 20120605
  6. REBETOL [Suspect]
     Dosage: 400 MG, QD
     Route: 048
     Dates: start: 20120605, end: 20120709
  7. REBETOL [Suspect]
     Dosage: 200 MG, QD
     Route: 048
     Dates: start: 20120710
  8. PEGINTERFERON ALFA-2B [Concomitant]
     Dosage: 1.5 ?G/KG, QW
     Route: 058
     Dates: start: 20120409
  9. LENDORMIN [Concomitant]
     Dosage: 0.25 MG, QD/PRN
     Route: 048
     Dates: start: 20120409
  10. LENDORMIN [Concomitant]
     Dosage: 0.25 MG, QD
     Route: 048
  11. PURSENNID [Concomitant]
     Dosage: 24 MG, QD
     Route: 048
     Dates: start: 20120420, end: 20120702
  12. ZYLORIC [Concomitant]
     Dosage: 200 MG, QD
     Route: 048

REACTIONS (1)
  - Erythema multiforme [Recovering/Resolving]
